FAERS Safety Report 5825627-1 (Version None)
Quarter: 2008Q3

REPORT INFORMATION
  Report Type: 
  Country: None (occurrence: None)
  Receive Date: 20080729
  Receipt Date: 20080718
  Transmission Date: 20090109
  Serious: Yes (Other)
  Sender: FDA-Public Use
  Company Number: B0529869A

PATIENT
  Age: 34 Year
  Sex: Female

DRUGS (9)
  1. ZOPHREN [Suspect]
     Dosage: 24MG PER DAY
     Route: 042
     Dates: start: 20080623, end: 20080624
  2. PLITICAN [Suspect]
     Dosage: 100MG PER DAY
     Route: 042
     Dates: start: 20080623, end: 20080624
  3. TAXOTERE [Concomitant]
     Indication: CHEMOTHERAPY
     Dosage: 130MG PER DAY
     Dates: start: 20080623
  4. CISPLATIN [Concomitant]
     Indication: CHEMOTHERAPY
     Dosage: 35MG PER DAY
     Dates: start: 20080623
  5. FLUOROURACIL [Concomitant]
     Indication: CHEMOTHERAPY
     Dosage: 1300MG PER DAY
     Dates: start: 20080623
  6. CETUXIMAB [Concomitant]
     Dates: start: 20060624
  7. EMEND [Concomitant]
     Indication: CHEMOTHERAPY
     Dates: start: 20080623
  8. SOLUPRED [Concomitant]
     Indication: PREMEDICATION
     Dates: start: 20080623
  9. METHYLPREDNISOLONE [Concomitant]
     Indication: PREMEDICATION
     Dates: start: 20080623

REACTIONS (3)
  - DRUG HYPERSENSITIVITY [None]
  - PRURIGO [None]
  - URTICARIA [None]
